FAERS Safety Report 5797679-9 (Version None)
Quarter: 2008Q3

REPORT INFORMATION
  Report Type: 
  Country: None (occurrence: None)
  Receive Date: 20080702
  Receipt Date: 20080626
  Transmission Date: 20090109
  Serious: Yes (Other)
  Sender: FDA-Public Use
  Company Number: ES-WYE-G01772808

PATIENT
  Age: 43 Year
  Sex: Female

DRUGS (1)
  1. TAZOCEL [Suspect]
     Indication: ABDOMINAL ABSCESS
     Route: 042
     Dates: start: 20080108, end: 20080120

REACTIONS (5)
  - DRUG RASH WITH EOSINOPHILIA AND SYSTEMIC SYMPTOMS [None]
  - EOSINOPHILIA [None]
  - LIVER INJURY [None]
  - LYMPHADENOPATHY [None]
  - LYMPHOCYTE MORPHOLOGY ABNORMAL [None]
